FAERS Safety Report 6096049-6 (Version None)
Quarter: 2009Q1

REPORT INFORMATION
  Report Type: 
  Country: None (occurrence: None)
  Receive Date: 20090227
  Receipt Date: 20080819
  Transmission Date: 20090719
  Serious: No
  Sender: FDA-Public Use
  Company Number: A0743305A

PATIENT
  Age: 56 Year
  Sex: Male

DRUGS (6)
  1. LAMICTAL [Suspect]
     Route: 048
     Dates: start: 20060101
  2. CONCERTA [Concomitant]
  3. ADDERALL 10 [Concomitant]
  4. XANAX XR [Concomitant]
  5. KLONOPIN [Concomitant]
  6. MARIJUANA [Concomitant]

REACTIONS (2)
  - INSOMNIA [None]
  - MOOD SWINGS [None]
